FAERS Safety Report 23098110 (Version 1)
Quarter: 2023Q4

REPORT INFORMATION
  Report Type: Spontaneous
  Country: US (occurrence: None)
  Receive Date: 20231020
  Receipt Date: 20231020
  Transmission Date: 20240109
  Serious: Yes (Hospitalization)
  Sender: FDA-Public Use
  Company Number: None

PATIENT
  Age: 75 Year
  Sex: Male

DRUGS (2)
  1. CYCLOBENZAPRINE HYDROCHLORIDE [Suspect]
     Active Substance: CYCLOBENZAPRINE HYDROCHLORIDE
     Dosage: FREQUENCY : AS NEEDED;?
     Route: 048
     Dates: start: 20221216, end: 20221230
  2. DEXTROMETHORPHAN HBR AND DOXYLAMINE SUCCINATE [Suspect]
     Active Substance: DEXTROMETHORPHAN\DOXYLAMINE SUCCINATE
     Dates: start: 20221229, end: 20221230

REACTIONS (4)
  - Confusional state [None]
  - Hallucination [None]
  - Mental status changes [None]
  - Therapy interrupted [None]

NARRATIVE: CASE EVENT DATE: 20221230
